FAERS Safety Report 15072821 (Version 1)
Quarter: 2018Q2

REPORT INFORMATION
  Report Type: Spontaneous
  Country: JP (occurrence: JP)
  Receive Date: 20180627
  Receipt Date: 20180627
  Transmission Date: 20180711
  Serious: Yes (Other)
  Sender: FDA-Public Use
  Company Number: JP-009507513-1806JPN002736J

PATIENT
  Age: 5 Decade
  Sex: Male

DRUGS (2)
  1. JANUVIA [Suspect]
     Active Substance: SITAGLIPTIN PHOSPHATE
     Dosage: 50 MG, UNK
     Route: 048
  2. SUGLAT [Suspect]
     Active Substance: IPRAGLIFLOZIN L-PROLINE
     Dosage: 25 MG, UNK
     Route: 065

REACTIONS (1)
  - Diabetes mellitus inadequate control [Unknown]
